FAERS Safety Report 4830261-6 (Version None)
Quarter: 2005Q4

REPORT INFORMATION
  Report Type: 
  Country: None (occurrence: None)
  Receive Date: 20051117
  Receipt Date: 20051114
  Transmission Date: 20060501
  Serious: Yes (Hospitalization)
  Sender: FDA-Public Use
  Company Number: 423740

PATIENT
  Age: 76 Year
  Sex: Male

DRUGS (7)
  1. CARVEDILOL [Suspect]
     Indication: CARDIAC FAILURE
     Dosage: 10MG PER DAY
     Route: 048
     Dates: start: 20050621, end: 20050701
  2. CASODEX [Concomitant]
     Indication: DRUG USE FOR UNKNOWN INDICATION
     Route: 065
  3. ENALAPRIL [Concomitant]
     Indication: DRUG USE FOR UNKNOWN INDICATION
     Route: 065
  4. PRAVASTATIN [Concomitant]
     Indication: DRUG USE FOR UNKNOWN INDICATION
     Route: 065
  5. MAGNESIUM OXIDE [Concomitant]
     Indication: DRUG USE FOR UNKNOWN INDICATION
     Route: 065
  6. ASPIRIN [Concomitant]
     Indication: DRUG USE FOR UNKNOWN INDICATION
     Route: 065
  7. URSODEOXYCHOLIC ACID [Concomitant]
     Indication: DRUG USE FOR UNKNOWN INDICATION
     Route: 065

REACTIONS (13)
  - AORTIC VALVE INCOMPETENCE [None]
  - CARDIAC FAILURE [None]
  - DIZZINESS [None]
  - DRUG EFFECT INCREASED [None]
  - HEPATIC FUNCTION ABNORMAL [None]
  - HYPOXIA [None]
  - ILL-DEFINED DISORDER [None]
  - MALAISE [None]
  - MITRAL VALVE INCOMPETENCE [None]
  - PLEURAL EFFUSION [None]
  - RENAL IMPAIRMENT [None]
  - SHOCK [None]
  - SINUS ARREST [None]
